FAERS Safety Report 22232106 (Version 1)
Quarter: 2023Q2

REPORT INFORMATION
  Report Type: Report from Study
  Country: US (occurrence: US)
  Receive Date: 20230420
  Receipt Date: 20230420
  Transmission Date: 20230722
  Serious: Yes (Other)
  Sender: FDA-Public Use
  Company Number: US-PTx-2022000105

PATIENT
  Age: 69 Year
  Sex: Male
  Weight: 82.6 kg

DRUGS (15)
  1. LEUKINE [Suspect]
     Active Substance: SARGRAMOSTIM
     Indication: Parkinson^s disease
     Dosage: 3 MCG/KG, SC (GIVEN EVERY 5 OF 7 DAYS FOR UP TO 24 MONTHS)
     Route: 058
     Dates: start: 20190703, end: 20220713
  2. ASPIRIN [Concomitant]
     Active Substance: ASPIRIN
     Indication: Pain
     Dosage: 81 MG, ORAL
     Route: 048
  3. ATORVASTATIN [Concomitant]
     Active Substance: ATORVASTATIN
     Indication: Hyperlipidaemia
     Dosage: 10 MG, ORAL
     Route: 048
  4. CABIDOPA-LEVODOPA [Concomitant]
     Indication: Parkinson^s disease
     Dosage: 25-100 MG, ORAL
     Route: 048
  5. CELECOXIB [Concomitant]
     Active Substance: CELECOXIB
     Indication: Pain
     Dosage: 200 MG, ORAL
     Route: 048
  6. CHOLECALCIFEROL, VITAMIN D3 [Concomitant]
     Indication: Vitamin supplementation
     Dosage: 125 MCG, ORAL
     Route: 048
  7. CLONAZEPAM [Concomitant]
     Active Substance: CLONAZEPAM
     Indication: Sleep terror
     Dosage: 1.5 MG, ORAL
     Route: 048
  8. LANOLIN CREAM [Concomitant]
     Indication: Dry skin
     Dosage: TOPICAL CREAM
     Route: 061
  9. LEVODOPA [Concomitant]
     Active Substance: LEVODOPA
     Indication: Parkinson^s disease
     Dosage: 42 MG, ORAL
     Route: 048
  10. LORATADINE [Concomitant]
     Active Substance: LORATADINE
     Indication: Hypersensitivity
     Dosage: 10 MG, ORAL
     Route: 048
  11. MAGNESIUM [Concomitant]
     Active Substance: MAGNESIUM
     Indication: Mineral supplementation
     Dosage: 250 MG, ORAL
     Route: 048
  12. PEG 400 PROPYLENE GLYCOL EYE DROPS [Concomitant]
     Indication: Dry eye
     Dosage: PEG 400 PROPYLENE GLYCOL EYE DROPS IN BOTH EYES
     Route: 061
  13. ROTIGOTINE [Concomitant]
     Active Substance: ROTIGOTINE
     Indication: Parkinson^s disease
     Dosage: 2 MG, ORAL
     Route: 048
  14. ZINC GLUCONATE [Concomitant]
     Active Substance: ZINC GLUCONATE
     Indication: Nasopharyngitis
     Dosage: 50 MG, ORAL
     Route: 048
  15. VITAMIN D3 [Concomitant]
     Active Substance: CHOLECALCIFEROL
     Indication: Vitamin supplementation
     Route: 048

REACTIONS (1)
  - Cerebral venous sinus thrombosis [Not Recovered/Not Resolved]

NARRATIVE: CASE EVENT DATE: 20190715
